FAERS Safety Report 8540386-X (Version None)
Quarter: 2012Q3

REPORT INFORMATION
  Report Type: 
  Country: None (occurrence: None)
  Receive Date: 20120726
  Receipt Date: 20110817
  Transmission Date: 20120928
  Serious: No
  Sender: FDA-Public Use
  Company Number: US-ASTRAZENECA-2011SE07123

PATIENT
  Age: 39 Year
  Sex: Female
  Weight: 88.5 kg

DRUGS (8)
  1. SEROQUEL [Suspect]
     Dosage: QD
     Route: 048
  2. GAVAPEN [Concomitant]
     Indication: CONVULSION
     Dosage: QD
     Route: 048
  3. SEROQUEL [Suspect]
     Indication: DEPRESSION
     Route: 048
     Dates: start: 20110205
  4. SEROQUEL [Suspect]
     Dosage: QD
     Route: 048
  5. THYROID MEDICATION [Concomitant]
     Indication: THYROID DISORDER
  6. LOMICTAN [Concomitant]
     Indication: DEPRESSION
     Dosage: QD
     Route: 048
  7. GAVAPEN [Concomitant]
     Indication: PAIN
     Dosage: QD
     Route: 048
  8. EMSAM [Concomitant]
     Indication: DEPRESSION

REACTIONS (7)
  - MALAISE [None]
  - DYSPEPSIA [None]
  - SOMNOLENCE [None]
  - FATIGUE [None]
  - DRUG INTOLERANCE [None]
  - WEIGHT INCREASED [None]
  - PAIN [None]
